FAERS Safety Report 17185198 (Version 1)
Quarter: 2019Q4

REPORT INFORMATION
  Report Type: Spontaneous
  Country: CN (occurrence: CN)
  Receive Date: 20191220
  Receipt Date: 20191220
  Transmission Date: 20200122
  Serious: Yes (Other)
  Sender: FDA-Public Use
  Company Number: CN-ASTRAZENECA-2019SF83526

PATIENT
  Age: 77 Year
  Sex: Male
  Weight: 65 kg

DRUGS (2)
  1. CRESTOR [Suspect]
     Active Substance: ROSUVASTATIN CALCIUM
     Indication: LIPIDS ABNORMAL
     Route: 048
     Dates: start: 20191122, end: 20191125
  2. LESCOL [Suspect]
     Active Substance: FLUVASTATIN SODIUM
     Indication: LIPIDS ABNORMAL
     Route: 065
     Dates: start: 20191118, end: 20191122

REACTIONS (1)
  - Drug-induced liver injury [Recovering/Resolving]

NARRATIVE: CASE EVENT DATE: 20191123
